FAERS Safety Report 24990369 (Version 2)
Quarter: 2025Q1

REPORT INFORMATION
  Report Type: Spontaneous
  Country: CN (occurrence: CN)
  Receive Date: 20250220
  Receipt Date: 20250221
  Transmission Date: 20250409
  Serious: Yes (Hospitalization)
  Sender: PFIZER
  Company Number: CN-MLMSERVICE-20250207-PI401436-00111-1

PATIENT
  Age: 67 Year
  Sex: Male
  Weight: 55 kg

DRUGS (9)
  1. VORICONAZOLE [Suspect]
     Active Substance: VORICONAZOLE
     Indication: Bordetella infection
     Dosage: 0.2 G, 2X/DAY
     Route: 042
     Dates: start: 20230627, end: 20230630
  2. VORICONAZOLE [Suspect]
     Active Substance: VORICONAZOLE
     Indication: Pneumocystis jirovecii pneumonia
  3. VORICONAZOLE [Suspect]
     Active Substance: VORICONAZOLE
     Indication: Aspergillus infection
  4. VORICONAZOLE [Suspect]
     Active Substance: VORICONAZOLE
     Indication: Herpes simplex
  5. SULFAMETHOXAZOLE\TRIMETHOPRIM [Suspect]
     Active Substance: SULFAMETHOXAZOLE\TRIMETHOPRIM
     Indication: Antibiotic therapy
     Dosage: [TRIMETHOPRIM 320 MG]/[SULFAMETHOXAZOLE1600 MG] Q8H
     Route: 048
     Dates: start: 20230625, end: 20230626
  6. SULFAMETHOXAZOLE\TRIMETHOPRIM [Suspect]
     Active Substance: SULFAMETHOXAZOLE\TRIMETHOPRIM
     Indication: Pneumocystis jirovecii pneumonia
     Dosage: [TRIMETHOPRIM 480 MG]/[SULFAMETHOXAZOLE 2400 MG] Q8H
     Route: 048
     Dates: start: 20230627, end: 20230702
  7. SULFAMETHOXAZOLE\TRIMETHOPRIM [Suspect]
     Active Substance: SULFAMETHOXAZOLE\TRIMETHOPRIM
     Dosage: [TRIMETHOPRIM 320 MG]/[SULFAMETHOXAZOLE1600 MG] Q8H
     Route: 048
     Dates: start: 20230703, end: 20230807
  8. CASPOFUNGIN [Concomitant]
     Active Substance: CASPOFUNGIN
     Indication: Antibiotic therapy
     Dosage: 70 MG, 1X/DAY
     Route: 042
     Dates: start: 20230625, end: 20230625
  9. CASPOFUNGIN [Concomitant]
     Active Substance: CASPOFUNGIN
     Indication: Fungal infection
     Dosage: 50 MG FROM THE SECOND DAY ONWARD
     Route: 042
     Dates: start: 20230626, end: 20230716

REACTIONS (5)
  - Hallucination, auditory [Recovered/Resolved]
  - Hallucination, visual [Recovered/Resolved]
  - Aphasia [Recovered/Resolved]
  - Agitation [Recovered/Resolved]
  - Restlessness [Recovered/Resolved]

NARRATIVE: CASE EVENT DATE: 20230629
